FAERS Safety Report 21244588 (Version 5)
Quarter: 2022Q3

REPORT INFORMATION
  Report Type: Report from Study
  Country: DE (occurrence: DE)
  Receive Date: 20220823
  Receipt Date: 20220915
  Transmission Date: 20221027
  Serious: Yes (Hospitalization, Other)
  Sender: FDA-Public Use
  Company Number: DE-BRISTOL-MYERS SQUIBB COMPANY-2022-018779

PATIENT
  Age: 86 Year
  Sex: Male

DRUGS (11)
  1. NIVOLUMAB [Suspect]
     Active Substance: NIVOLUMAB
     Indication: Renal cell carcinoma
     Route: 042
     Dates: start: 20180905
  2. HYDROCHLOROTHIAZIDE\RAMIPRIL [Concomitant]
     Active Substance: HYDROCHLOROTHIAZIDE\RAMIPRIL
     Indication: Cardiovascular disorder
     Dosage: 5MG/25MG ((RAMIPRIL, HYDROCHLOROTHIAZIDE)
     Route: 065
     Dates: start: 20150101, end: 20210913
  3. FEBUXOSTAT [Concomitant]
     Active Substance: FEBUXOSTAT
     Indication: Disease complication
     Route: 065
     Dates: start: 20150101
  4. BISOPROLOL [Concomitant]
     Active Substance: BISOPROLOL
     Indication: Cardiovascular disorder
     Route: 065
     Dates: start: 20150101
  5. LERCANIDIPINE [Concomitant]
     Active Substance: LERCANIDIPINE
     Indication: Cardiovascular disorder
     Route: 065
     Dates: start: 20150101, end: 20191018
  6. ATORVASTATIN [Concomitant]
     Active Substance: ATORVASTATIN
     Indication: Metabolic disorder
     Route: 065
     Dates: start: 20150101
  7. DUOGALEN [Concomitant]
     Indication: Disease complication
     Dosage: 30/0.2MG (FLUMETASONE, TRICLOSAN)
     Route: 065
     Dates: start: 20150101
  8. TORSEMIDE [Concomitant]
     Active Substance: TORSEMIDE
     Indication: Cardiovascular disorder
     Route: 065
     Dates: start: 20150101
  9. PERENTEROL JUNIOR [Concomitant]
     Indication: Disease complication
     Route: 065
     Dates: start: 20170101, end: 20180801
  10. COVID-19 VACCINE [Concomitant]
     Indication: COVID-19 immunisation
     Route: 065
     Dates: start: 20210316, end: 20210316
  11. COVID-19 VACCINE [Concomitant]
     Route: 065
     Dates: start: 20210408, end: 20210408

REACTIONS (4)
  - Aortic aneurysm [Recovered/Resolved]
  - Incision site impaired healing [Unknown]
  - Pruritus [Not Recovered/Not Resolved]
  - Procedural pain [Recovered/Resolved]

NARRATIVE: CASE EVENT DATE: 20220216
